FAERS Safety Report 4701091-0 (Version None)
Quarter: 2005Q2

REPORT INFORMATION
  Report Type: 
  Country: None (occurrence: None)
  Receive Date: 20050624
  Receipt Date: 20050620
  Transmission Date: 20051028
  Serious: Yes (Other)
  Sender: FDA-Public Use
  Company Number: 200510058BCC

PATIENT
  Age: 57 Year
  Sex: Female
  Weight: 56.246 kg

DRUGS (9)
  1. BAYER MUSCLE + JOINT CREAM (CAMPHOR/EUCALYPTUS/MENTHOL/METHYL SALICYLA [Suspect]
     Indication: DIABETIC NEUROPATHY
     Dosage: ONCE, TOPICAL
     Route: 061
     Dates: start: 20050104
  2. BAYER MUSCLE + JOINT CREAM (CAMPHOR/EUCALYPTUS/MENTHOL/METHYL SALICYLA [Suspect]
     Indication: PAIN
     Dosage: ONCE, TOPICAL
     Route: 061
     Dates: start: 20050104
  3. ASPIRIN [Suspect]
     Indication: MYOCARDIAL INFARCTION
     Dosage: 81 MG, QD, ORAL
     Route: 048
  4. ASPIRIN [Suspect]
     Indication: PROPHYLAXIS
     Dosage: 81 MG, QD, ORAL
     Route: 048
  5. INSULIN [Concomitant]
  6. ZANTAC [Concomitant]
  7. DURAGESIC-100 [Concomitant]
  8. PROPACET 100 [Concomitant]
  9. HYDROCHLOROTHIAZIDE [Concomitant]

REACTIONS (7)
  - APPLICATION SITE IRRITATION [None]
  - BLOOD GLUCOSE INCREASED [None]
  - BLOOD PRESSURE INCREASED [None]
  - BURNING SENSATION [None]
  - CHEST PAIN [None]
  - CONDITION AGGRAVATED [None]
  - DYSPNOEA [None]
